FAERS Safety Report 26160239 (Version 1)
Quarter: 2025Q4

REPORT INFORMATION
  Report Type: Spontaneous
  Country: US (occurrence: None)
  Receive Date: 20251216
  Receipt Date: 20251216
  Transmission Date: 20260118
  Serious: No
  Sender: ENDO
  Company Number: US-ENDO USA, INC.-2025-001800

PATIENT

DRUGS (8)
  1. XIAFLEX [Suspect]
     Active Substance: COLLAGENASE CLOSTRIDIUM HISTOLYTICUM
     Indication: Peyronie^s disease
     Dosage: 0.58 MILLIGRAM, SINGLE (2 TIMES, 1-3 DAYS APART) (CYCLE 4, INJECTION 2)
     Dates: start: 20250725, end: 20250725
  2. XIAFLEX [Suspect]
     Active Substance: COLLAGENASE CLOSTRIDIUM HISTOLYTICUM
     Dosage: 0.58 MILLIGRAM, SINGLE (2 TIMES, 1-3 DAYS APART) (CYCLE 4, INJECTION 1)
     Dates: start: 202507, end: 202507
  3. XIAFLEX [Suspect]
     Active Substance: COLLAGENASE CLOSTRIDIUM HISTOLYTICUM
     Dosage: 0.58 MILLIGRAM, SINGLE (2 TIMES, 1-3 DAYS APART) (CYCLE 1, INJECTION 1)
  4. XIAFLEX [Suspect]
     Active Substance: COLLAGENASE CLOSTRIDIUM HISTOLYTICUM
     Dosage: 0.58 MILLIGRAM, SINGLE (2 TIMES, 1-3 DAYS APART) (CYCLE 1, INJECTION 2)
  5. XIAFLEX [Suspect]
     Active Substance: COLLAGENASE CLOSTRIDIUM HISTOLYTICUM
     Dosage: 0.58 MILLIGRAM, SINGLE (2 TIMES, 1-3 DAYS APART) (CYCLE 2, INJECTION 1)
  6. XIAFLEX [Suspect]
     Active Substance: COLLAGENASE CLOSTRIDIUM HISTOLYTICUM
     Dosage: 0.58 MILLIGRAM, SINGLE (2 TIMES, 1-3 DAYS APART) (CYCLE 2, INJECTION 2)
  7. XIAFLEX [Suspect]
     Active Substance: COLLAGENASE CLOSTRIDIUM HISTOLYTICUM
     Dosage: 0.58 MILLIGRAM, SINGLE (2 TIMES, 1-3 DAYS APART) (CYCLE 3, INJECTION 1)
  8. XIAFLEX [Suspect]
     Active Substance: COLLAGENASE CLOSTRIDIUM HISTOLYTICUM
     Dosage: 0.58 MILLIGRAM, SINGLE (2 TIMES, 1-3 DAYS APART) (CYCLE 3, INJECTION 2)

REACTIONS (3)
  - Swelling [Unknown]
  - Contusion [Not Recovered/Not Resolved]
  - Nodule [Not Recovered/Not Resolved]

NARRATIVE: CASE EVENT DATE: 20250701
